FAERS Safety Report 16953530 (Version 1)
Quarter: 2019Q4

REPORT INFORMATION
  Report Type: Spontaneous
  Country: FR (occurrence: FR)
  Receive Date: 20191023
  Receipt Date: 20191023
  Transmission Date: 20200122
  Serious: Yes (Life-Threatening)
  Sender: FDA-Public Use
  Company Number: FR-BAUSCH-BL-2019-058575

PATIENT
  Age: 46 Year
  Sex: Female
  Weight: 48 kg

DRUGS (3)
  1. CHLORHYDRATE DE TRAMADOL [Suspect]
     Active Substance: TRAMADOL HYDROCHLORIDE
     Indication: TOXICITY TO VARIOUS AGENTS
     Dosage: TOTAL
     Route: 048
     Dates: start: 20190907, end: 20190907
  2. DIAZEPAM. [Suspect]
     Active Substance: DIAZEPAM
     Indication: TOXICITY TO VARIOUS AGENTS
     Dosage: TOTAL
     Route: 048
     Dates: start: 20190907, end: 20190907
  3. METOCLOPRAMIDE. [Suspect]
     Active Substance: METOCLOPRAMIDE
     Indication: TOXICITY TO VARIOUS AGENTS
     Dosage: TOTAL
     Route: 048
     Dates: start: 20190907, end: 20190907

REACTIONS (1)
  - Coma [Recovered/Resolved]

NARRATIVE: CASE EVENT DATE: 20190907
